FAERS Safety Report 19457858 (Version 1)
Quarter: 2021Q2

REPORT INFORMATION
  Report Type: Spontaneous
  Country: US (occurrence: US)
  Receive Date: 20210624
  Receipt Date: 20210624
  Transmission Date: 20210717
  Serious: No
  Sender: FDA-Public Use
  Company Number: US-PFIZER INC-2021605796

PATIENT
  Age: 40 Year
  Sex: Female

DRUGS (1)
  1. DEPO?PROVERA [Suspect]
     Active Substance: MEDROXYPROGESTERONE ACETATE
     Indication: ENDOMETRIOSIS
     Dosage: UNK, EVERY 3 MONTHS

REACTIONS (2)
  - Poor quality device used [Unknown]
  - Needle issue [Unknown]

NARRATIVE: CASE EVENT DATE: 20210522
